FAERS Safety Report 6791341-1 (Version None)
Quarter: 2010Q2

REPORT INFORMATION
  Report Type: 
  Country: None (occurrence: None)
  Receive Date: 20100624
  Receipt Date: 20100615
  Transmission Date: 20101027
  Serious: Yes (Hospitalization)
  Sender: FDA-Public Use
  Company Number: US-ROCHE-710966

PATIENT
  Age: 54 Year
  Sex: Male
  Weight: 93 kg

DRUGS (5)
  1. PEGINTERFERON ALFA-2A [Suspect]
     Indication: HEPATITIS C
     Dosage: DOSE: 180 UG/.5 ML
     Route: 058
     Dates: start: 20090506, end: 20100330
  2. OXYCODONE HCL [Concomitant]
     Dosage: DRUG REPORTED: OXYCODONE/MORPHINE
     Dates: start: 20080201
  3. PERCOCET [Concomitant]
     Dates: start: 20090515
  4. PROVIGIL [Concomitant]
     Dates: start: 20041001
  5. WELLBUTRIN [Concomitant]
     Dates: start: 19991001

REACTIONS (4)
  - CEREBRAL ISCHAEMIA [None]
  - ENCEPHALOPATHY [None]
  - LOSS OF CONSCIOUSNESS [None]
  - SYNCOPE [None]
